FAERS Safety Report 24251737 (Version 1)
Quarter: 2024Q3

REPORT INFORMATION
  Report Type: Spontaneous
  Country: DE (occurrence: DE)
  Receive Date: 20240827
  Receipt Date: 20240827
  Transmission Date: 20241016
  Serious: Yes (Life-Threatening, Hospitalization, Other)
  Sender: ALKEM
  Company Number: DE-ALKEM LABORATORIES LIMITED-DE-ALKEM-2024-18479

PATIENT
  Age: 12 Week
  Sex: Male

DRUGS (1)
  1. LIDOCAINE [Suspect]
     Active Substance: LIDOCAINE
     Indication: Circumcision
     Dosage: UNK
     Route: 065

REACTIONS (8)
  - Status epilepticus [Recovering/Resolving]
  - Respiratory failure [Recovering/Resolving]
  - Altered state of consciousness [Recovering/Resolving]
  - Drug level increased [Recovering/Resolving]
  - Local anaesthetic systemic toxicity [Recovering/Resolving]
  - Overdose [Unknown]
  - Sinus tachycardia [Recovering/Resolving]
  - Wrong technique in product usage process [Unknown]
